FAERS Safety Report 8983838 (Version 1)
Quarter: 2012Q4

REPORT INFORMATION
  Report Type: Report from Study
  Country: RU (occurrence: RU)
  Receive Date: 20121224
  Receipt Date: 20121224
  Transmission Date: 20130627
  Serious: Yes (Other)
  Sender: FDA-Public Use
  Company Number: RU-ROCHE-1170783

PATIENT
  Age: 60 Year
  Sex: Female
  Weight: 77 kg

DRUGS (5)
  1. BEVACIZUMAB [Suspect]
     Indication: COLON CANCER
     Route: 042
     Dates: start: 20120503
  2. CAPECITABINE [Suspect]
     Indication: COLON CANCER
     Route: 065
     Dates: start: 20120503, end: 20121018
  3. CAPECITABINE [Suspect]
     Route: 065
     Dates: start: 20121129
  4. OXALIPLATIN [Concomitant]
     Indication: COLON CANCER
     Route: 042
     Dates: start: 20120503, end: 20121018
  5. IRINOTECAN [Concomitant]
     Route: 042
     Dates: start: 20121129

REACTIONS (1)
  - Disease progression [Not Recovered/Not Resolved]
